FAERS Safety Report 13650786 (Version 1)
Quarter: 2017Q2

REPORT INFORMATION
  Report Type: Spontaneous
  Country: GB (occurrence: GB)
  Receive Date: 20170614
  Receipt Date: 20170614
  Transmission Date: 20170830
  Serious: Yes (Hospitalization, Disabling, Other)
  Sender: FDA-Public Use
  Company Number: GB-TEVA-777235ACC

PATIENT
  Age: 64 Year
  Sex: Female
  Weight: 78 kg

DRUGS (10)
  1. CALCIUM [Concomitant]
     Active Substance: CALCIUM
  2. LISINOPRIL. [Concomitant]
     Active Substance: LISINOPRIL
  3. TURMERIC [Concomitant]
     Active Substance: HERBALS\TURMERIC
  4. PREMARIN [Concomitant]
     Active Substance: ESTROGENS, CONJUGATED
  5. AMLODIPINE [Suspect]
     Active Substance: AMLODIPINE BESYLATE
     Indication: HYPERTENSION
     Dosage: 5 MILLIGRAM DAILY;
     Route: 048
     Dates: start: 20081001, end: 20170503
  6. BETAHISTINE [Concomitant]
     Active Substance: BETAHISTINE
  7. VITAMIN D [Concomitant]
     Active Substance: CHOLECALCIFEROL
  8. KRILL OIL [Concomitant]
     Active Substance: DIETARY SUPPLEMENT
  9. MAGNESIUM [Concomitant]
     Active Substance: MAGNESIUM
  10. VITAMIN C [Concomitant]
     Active Substance: ASCORBIC ACID

REACTIONS (4)
  - Pain [Recovering/Resolving]
  - Muscle swelling [Recovering/Resolving]
  - Joint swelling [Recovering/Resolving]
  - Immobile [Unknown]

NARRATIVE: CASE EVENT DATE: 20170301
